FAERS Safety Report 8296354-9 (Version None)
Quarter: 2012Q2

REPORT INFORMATION
  Report Type: 
  Country: None (occurrence: None)
  Receive Date: 20120418
  Receipt Date: 20120410
  Transmission Date: 20120825
  Serious: Yes (Other)
  Sender: FDA-Public Use
  Company Number: AU-FRI-1000029684

PATIENT
  Sex: Male

DRUGS (4)
  1. OLMESARTAN MEDOXOMIL AND HYDROCHLOROTHIZIDE [Concomitant]
     Dosage: 40/12.5
  2. ESCITALOPRAM [Suspect]
     Indication: DEPRESSION
     Dosage: 20 MG
     Route: 048
     Dates: start: 20110101, end: 20110301
  3. CLOPIDOGREL [Concomitant]
  4. FELODIPINE [Concomitant]
     Dosage: 5 MG

REACTIONS (5)
  - ERECTILE DYSFUNCTION [None]
  - HYPERHIDROSIS [None]
  - TREMOR [None]
  - FATIGUE [None]
  - TRANSIENT ISCHAEMIC ATTACK [None]
